FAERS Safety Report 9537375 (Version 1)
Quarter: 2013Q3

REPORT INFORMATION
  Report Type: Spontaneous
  Country: US (occurrence: US)
  Receive Date: 20130919
  Receipt Date: 20130919
  Transmission Date: 20140515
  Serious: Yes (Hospitalization, Other)
  Sender: FDA-Public Use
  Company Number: PHEH2013US019417

PATIENT
  Sex: Female

DRUGS (1)
  1. CLOZARIL [Suspect]
     Dosage: 225 MG, BID (1 IN THE MORNING AND ONE AT NIGHT)

REACTIONS (11)
  - Toxicity to various agents [Unknown]
  - Cognitive disorder [Unknown]
  - Balance disorder [Unknown]
  - Convulsion [Unknown]
  - Fall [Unknown]
  - Asthenia [Unknown]
  - Disturbance in attention [Unknown]
  - Vertigo [Unknown]
  - Orthostatic hypotension [Unknown]
  - Dizziness [Unknown]
  - Constipation [Unknown]
